FAERS Safety Report 7432893-8 (Version None)
Quarter: 2011Q2

REPORT INFORMATION
  Report Type: 
  Country: None (occurrence: None)
  Receive Date: 20110422
  Receipt Date: 20110418
  Transmission Date: 20111010
  Serious: Yes (Death)
  Sender: FDA-Public Use
  Company Number: JP-SANOFI-AVENTIS-2011SA023646

PATIENT
  Age: 56 Year
  Sex: Female

DRUGS (9)
  1. CALCIUM LEVOFOLINATE [Suspect]
     Indication: COLON CANCER RECURRENT
     Route: 041
     Dates: start: 20100301
  2. ELPLAT [Suspect]
     Indication: COLON CANCER RECURRENT
     Route: 041
     Dates: start: 20100301
  3. ELPLAT [Suspect]
     Route: 041
     Dates: start: 20101206, end: 20101206
  4. FLUOROURACIL [Suspect]
     Indication: COLON CANCER RECURRENT
     Route: 042
     Dates: start: 20100301
  5. AVASTIN [Suspect]
     Indication: COLON CANCER RECURRENT
     Route: 041
     Dates: start: 20100301
  6. CALCIUM LEVOFOLINATE [Suspect]
     Route: 041
     Dates: start: 20101206, end: 20101206
  7. AVASTIN [Suspect]
     Route: 041
     Dates: start: 20101206, end: 20101206
  8. XELODA [Suspect]
     Indication: COLON CANCER RECURRENT
     Route: 048
     Dates: start: 20110217, end: 20110228
  9. FLUOROURACIL [Suspect]
     Route: 042
     Dates: start: 20101201

REACTIONS (7)
  - EPISTAXIS [None]
  - NEUTROPHIL COUNT DECREASED [None]
  - MULTI-ORGAN FAILURE [None]
  - PANCYTOPENIA [None]
  - DECREASED APPETITE [None]
  - STOMATITIS [None]
  - SEPSIS [None]
